FAERS Safety Report 4409306-3 (Version None)
Quarter: 2004Q3

REPORT INFORMATION
  Report Type: 
  Country: None (occurrence: None)
  Receive Date: 20040723
  Receipt Date: 20040521
  Transmission Date: 20050211
  Serious: Yes (Death)
  Sender: FDA-Public Use
  Company Number: 2004S1001493

PATIENT
  Age: 73 Year
  Sex: Female

DRUGS (5)
  1. CLOZAPINE [Suspect]
     Indication: PARKINSONISM
     Dosage: 25 MG, QD, ORAL
     Route: 048
     Dates: start: 20010831, end: 20040205
  2. LEVOTHYROXINE SODIUM [Concomitant]
  3. CARBIDOPA/LEVIDOPA [Concomitant]
  4. DONEPEZIL HCL [Concomitant]
  5. VENLAFAXINE HCL [Concomitant]

REACTIONS (3)
  - CEREBROVASCULAR ACCIDENT [None]
  - PARKINSON'S DISEASE [None]
  - PNEUMONIA ASPIRATION [None]
